FAERS Safety Report 19271361 (Version 3)
Quarter: 2022Q2

REPORT INFORMATION
  Report Type: Report from Study
  Country: US (occurrence: US)
  Receive Date: 20210518
  Receipt Date: 20220610
  Transmission Date: 20220721
  Serious: Yes (Hospitalization)
  Sender: FDA-Public Use
  Company Number: US-ABBVIE-21P-163-3899876-00

PATIENT
  Age: 20 Year
  Sex: Male
  Weight: 89.8 kg

DRUGS (13)
  1. VENETOCLAX [Suspect]
     Active Substance: VENETOCLAX
     Indication: Refractory cancer
     Route: 048
     Dates: start: 20201201, end: 20201201
  2. VENETOCLAX [Suspect]
     Active Substance: VENETOCLAX
     Indication: Recurrent cancer
     Route: 048
     Dates: start: 20201202, end: 20201202
  3. VENETOCLAX [Suspect]
     Active Substance: VENETOCLAX
     Route: 048
     Dates: start: 20201203, end: 20210504
  4. DECITABINE [Suspect]
     Active Substance: DECITABINE
     Indication: Refractory cancer
     Dosage: DAYS 1 THROUGH 5 ONCE EVERY 28 DAYS
     Route: 042
     Dates: start: 20210112, end: 20210116
  5. DECITABINE [Suspect]
     Active Substance: DECITABINE
     Indication: Recurrent cancer
     Dosage: DAYS 1 THROUGH 5 ONCE EVERY 28 DAYS
     Route: 042
     Dates: start: 20210216, end: 20210218
  6. DECITABINE [Suspect]
     Active Substance: DECITABINE
     Dosage: DAYS 1 THROUGH 5 ONCE EVERY 28 DAYS
     Route: 042
     Dates: start: 20210323, end: 20210424
  7. AZACITIDINE [Suspect]
     Active Substance: AZACITIDINE
     Indication: Refractory cancer
     Dosage: DAYS 1 THROUGH 7 ONCE EVERY 28 DAYS
     Route: 042
     Dates: start: 20201204, end: 20201209
  8. AZACITIDINE [Suspect]
     Active Substance: AZACITIDINE
     Indication: Recurrent cancer
  9. FLUCONAZOLE [Concomitant]
     Active Substance: FLUCONAZOLE
     Indication: Pneumonia fungal
     Route: 048
     Dates: start: 20201125
  10. PENTAMIDINE [Concomitant]
     Active Substance: PENTAMIDINE
     Indication: Infection prophylaxis
     Route: 042
     Dates: start: 20210304
  11. ACYCLOVIR [Concomitant]
     Active Substance: ACYCLOVIR
     Indication: Cytomegalovirus infection
     Route: 048
     Dates: start: 20210226
  12. MELATONIN [Concomitant]
     Active Substance: MELATONIN
     Indication: Insomnia
     Route: 048
     Dates: start: 20210319
  13. TYLENOL [Concomitant]
     Active Substance: ACETAMINOPHEN
     Indication: Pain
     Route: 048
     Dates: start: 20210319

REACTIONS (3)
  - Soft tissue infection [Not Recovered/Not Resolved]
  - Bacteraemia [Recovered/Resolved]
  - Febrile neutropenia [Not Recovered/Not Resolved]

NARRATIVE: CASE EVENT DATE: 20210508
